FAERS Safety Report 9225709 (Version 1)
Quarter: 2013Q2

REPORT INFORMATION
  Report Type: Spontaneous
  Country: US (occurrence: None)
  Receive Date: 20130410
  Receipt Date: 20130410
  Transmission Date: 20140414
  Serious: Yes (Hospitalization)
  Sender: FDA-Public Use
  Company Number: None

PATIENT
  Age: 56 Year
  Sex: Male
  Weight: 109 kg

DRUGS (9)
  1. DILAUDID [Suspect]
     Indication: PROCEDURAL PAIN
     Dosage: 1MG ONCE @12NOON IV?RECENT
     Route: 042
  2. DILAUDID [Suspect]
     Indication: PROCEDURAL PAIN
     Dosage: 0.5MG ONCE @13:12 IV?RECENT
     Route: 042
  3. CLINDAMYCIN [Concomitant]
  4. HYDROXYZINE [Concomitant]
  5. DEPAKOTE ER [Concomitant]
  6. SEROQUEL [Concomitant]
  7. LEXAPRO [Concomitant]
  8. SEPTRA DS [Concomitant]
  9. LISINOPRIL [Concomitant]

REACTIONS (4)
  - Hypoxia [None]
  - Sedation [None]
  - Post procedural complication [None]
  - Wheezing [None]
